FAERS Safety Report 13365359 (Version 1)
Quarter: 2017Q1

REPORT INFORMATION
  Report Type: Spontaneous
  Country: US (occurrence: US)
  Receive Date: 20170323
  Receipt Date: 20170323
  Transmission Date: 20170429
  Serious: No
  Sender: FDA-Public Use
  Company Number: US-WARNER CHILCOTT-2012-000677

PATIENT
  Age: 71 Year
  Sex: Female
  Weight: 47.17 kg

DRUGS (12)
  1. ESTRACE [Suspect]
     Active Substance: ESTRADIOL
     Indication: VULVOVAGINAL DRYNESS
     Dosage: {0.5 G EVERY 5TH DAY
     Route: 067
     Dates: start: 2010
  2. VITAMIN C [Concomitant]
     Active Substance: ASCORBIC ACID
     Indication: NUTRITIONAL SUPPLEMENTATION
     Dosage: 1000 MG DAILY
     Route: 048
  3. MAGNESIUM [Concomitant]
     Active Substance: MAGNESIUM
     Dosage: UNKNOWN DAILY
     Route: 048
  4. ESTRACE [Suspect]
     Active Substance: ESTRADIOL
     Indication: ATROPHIC VULVOVAGINITIS
     Dosage: { 0.5 G EVERY 3RD DAY
     Route: 067
  5. ADVIL [Concomitant]
     Active Substance: IBUPROFEN
     Dosage: UNKNOWN, AS NEEDED
     Route: 048
  6. FLAXSEED [Concomitant]
     Active Substance: FLAX SEED
     Dosage: UNKNOWN DAILY
     Route: 048
  7. CITRUCEL [Concomitant]
     Active Substance: METHYLCELLULOSE (4000 MPA.S)
     Dosage: UNKNOWN DAILY
     Route: 048
  8. LIQUID CALCIUM                     /00751501/ [Concomitant]
     Dosage: UNKNOWN DAILY
     Route: 048
  9. ESTRACE [Suspect]
     Active Substance: ESTRADIOL
     Indication: VAGINAL DISORDER
     Dosage: { 0.5 G DAILY
     Route: 067
     Dates: start: 201111
  10. VITAMIN E                          /00110501/ [Concomitant]
     Active Substance: TOCOPHEROL
     Indication: NUTRITIONAL SUPPLEMENTATION
     Dosage: 1000 IU DAILY
     Route: 048
  11. MULTIVIT [Concomitant]
     Active Substance: VITAMINS
     Indication: NUTRITIONAL SUPPLEMENTATION
     Dosage: 1 DF DAILY
     Route: 048
  12. MELOXICAM. [Concomitant]
     Active Substance: MELOXICAM
     Indication: OSTEOARTHRITIS
     Dosage: UNK, UNKNOWN
     Route: 048

REACTIONS (11)
  - Arthritis [Not Recovered/Not Resolved]
  - Application site discharge [Unknown]
  - Wrong technique in product usage process [Unknown]
  - Arthralgia [Not Recovered/Not Resolved]
  - Fluid retention [Not Recovered/Not Resolved]
  - Breast tenderness [Unknown]
  - Abdominal distension [Unknown]
  - Headache [Recovered/Resolved]
  - Therapy change [Unknown]
  - Alopecia [Not Recovered/Not Resolved]
  - Genital discomfort [Unknown]

NARRATIVE: CASE EVENT DATE: 201111
